FAERS Safety Report 18999798 (Version 1)
Quarter: 2021Q1

REPORT INFORMATION
  Report Type: Spontaneous
  Country: US (occurrence: US)
  Receive Date: 20210312
  Receipt Date: 20210312
  Transmission Date: 20210420
  Serious: Yes (Life-Threatening, Hospitalization, Other)
  Sender: FDA-Public Use
  Company Number: US-GRANULES-US-2021GRALIT00182

PATIENT
  Age: 2 Month
  Sex: Male

DRUGS (7)
  1. ERYTHROMYCIN. [Interacting]
     Active Substance: ERYTHROMYCIN
     Indication: CORNEAL EPITHELIUM DEFECT
     Route: 065
  2. ACICLOVIR [Suspect]
     Active Substance: ACYCLOVIR
     Indication: PRODUCT USED FOR UNKNOWN INDICATION
     Route: 065
  3. ACETAMINOPHEN. [Suspect]
     Active Substance: ACETAMINOPHEN
     Indication: PRODUCT USED FOR UNKNOWN INDICATION
     Route: 065
  4. IMMUNOGLOBULIN [IMMUNOGLOBULINS NOS] [Interacting]
     Active Substance: IMMUNE GLOBULIN NOS
     Indication: SJS-TEN OVERLAP
     Route: 042
  5. VANCOMYCIN [Suspect]
     Active Substance: VANCOMYCIN
     Indication: PRODUCT USED FOR UNKNOWN INDICATION
     Route: 065
  6. CEFTRIAXONE. [Suspect]
     Active Substance: CEFTRIAXONE
     Indication: PRODUCT USED FOR UNKNOWN INDICATION
     Route: 065
  7. TOBRAMYCIN AND DEXAMETHASONE [Interacting]
     Active Substance: DEXAMETHASONE\TOBRAMYCIN
     Indication: SJS-TEN OVERLAP
     Route: 065

REACTIONS (2)
  - SJS-TEN overlap [Recovering/Resolving]
  - Acute respiratory failure [Recovering/Resolving]
